FAERS Safety Report 8871898 (Version 1)
Quarter: 2012Q4

REPORT INFORMATION
  Report Type: 
  Country: US (occurrence: US)
  Receive Date: 20121023
  Receipt Date: 20121023
  Transmission Date: 20130627
  Serious: No
  Sender: FDA-Public Use
  Company Number: US-ASTELLAS-2012US006060

PATIENT
  Age: 28 Year
  Sex: Male
  Weight: 95 kg

DRUGS (2)
  1. PROGRAF [Suspect]
     Indication: RENAL TRANSPLANT
     Dosage: 4 mg, bid
     Route: 048
     Dates: start: 20020307
  2. MYFORTIC [Concomitant]
     Indication: RENAL TRANSPLANT
     Dosage: 180 mg, bid
     Route: 048
     Dates: start: 20020307

REACTIONS (2)
  - Viral infection [Unknown]
  - Stomatitis [Unknown]
